FAERS Safety Report 17252544 (Version 5)
Quarter: 2020Q2

REPORT INFORMATION
  Report Type: Report from Study
  Country: US (occurrence: US)
  Receive Date: 20200109
  Receipt Date: 20200505
  Transmission Date: 20200713
  Serious: Yes (Hospitalization)
  Sender: FDA-Public Use
  Company Number: US-PFIZER INC-2020007650

PATIENT
  Age: 48 Year
  Sex: Female

DRUGS (3)
  1. IBRANCE [Suspect]
     Active Substance: PALBOCICLIB
     Dosage: 75 MG, CYCLIC (CYCLE IS 21 DAYS ON, 7 DAYS OFF)
     Route: 048
     Dates: start: 20200114
  2. IBRANCE [Suspect]
     Active Substance: PALBOCICLIB
     Indication: BREAST CANCER FEMALE
     Dosage: 125 MG, CYCLIC(21 DAYS ON, 7 DAYS OFF)
     Route: 048
     Dates: start: 20191205, end: 20191225
  3. FASLODEX [Suspect]
     Active Substance: FULVESTRANT
     Dosage: UNK

REACTIONS (13)
  - Burning sensation [Unknown]
  - Eating disorder [Recovering/Resolving]
  - Fatigue [Recovering/Resolving]
  - Oral pain [Recovering/Resolving]
  - Leukopenia [Unknown]
  - Oropharyngeal discomfort [Unknown]
  - Acute pulmonary oedema [Unknown]
  - Decreased appetite [Not Recovered/Not Resolved]
  - Hyperkalaemia [Unknown]
  - Nausea [Recovering/Resolving]
  - Weight decreased [Unknown]
  - Hypoxia [Unknown]
  - Alopecia [Not Recovered/Not Resolved]

NARRATIVE: CASE EVENT DATE: 2019
